FAERS Safety Report 17528067 (Version 1)
Quarter: 2020Q1

REPORT INFORMATION
  Report Type: Report from Study
  Country: PL (occurrence: PL)
  Receive Date: 20200311
  Receipt Date: 20200311
  Transmission Date: 20200409
  Serious: Yes (Hospitalization)
  Sender: FDA-Public Use
  Company Number: PL-PFIZER INC-2019521479

PATIENT
  Age: 59 Year
  Sex: Male

DRUGS (16)
  1. CLEMASTINUM [CLEMASTINE FUMARATE] [Concomitant]
     Dosage: UNK
     Dates: start: 20190123
  2. RAMIPRIL. [Concomitant]
     Active Substance: RAMIPRIL
     Dosage: UNK
  3. RANITIDINE. [Concomitant]
     Active Substance: RANITIDINE
     Dosage: UNK
     Dates: start: 20190123
  4. PROPAFENONE. [Concomitant]
     Active Substance: PROPAFENONE
     Dosage: UNK
  5. IRINOTECAN HCL [Suspect]
     Active Substance: IRINOTECAN HYDROCHLORIDE
     Indication: COLORECTAL CANCER METASTATIC
     Dosage: 180 MG/M2, UNK
     Dates: start: 20190123
  6. FOLINIC ACID [Suspect]
     Active Substance: LEUCOVORIN
     Indication: COLORECTAL CANCER METASTATIC
     Dosage: 200 MG/M2, UNK
     Dates: start: 20190123
  7. DEXAMETHASONE. [Concomitant]
     Active Substance: DEXAMETHASONE
     Dosage: UNK
     Dates: start: 20190123
  8. ONDASETRON [ONDANSETRON] [Concomitant]
     Dosage: UNK
     Dates: start: 20190123
  9. ENOXAPARIN [Concomitant]
     Active Substance: ENOXAPARIN
     Dosage: UNK
  10. HYDROXIZINUM [Concomitant]
     Active Substance: HYDROXYZINE HYDROCHLORIDE
     Dosage: UNK
     Dates: start: 20190123
  11. CETUXIMAB. [Suspect]
     Active Substance: CETUXIMAB
     Indication: COLORECTAL CANCER METASTATIC
     Dosage: 500 MG/M2, UNK
     Dates: start: 20190123, end: 20190320
  12. FLUOROURACIL. [Suspect]
     Active Substance: FLUOROURACIL
     Indication: COLORECTAL CANCER METASTATIC
     Dosage: 1000 MG/M2, UNK
     Dates: start: 20190123
  13. METOCLOPRAMIDUM [METOCLOPRAMIDE HYDROCHLORIDE] [Concomitant]
     Dosage: UNK
     Dates: start: 20190123
  14. LOPERAMIDE [Concomitant]
     Active Substance: LOPERAMIDE
     Dosage: UNK
     Dates: start: 20190125
  15. NEBIVOLOL. [Concomitant]
     Active Substance: NEBIVOLOL
     Dosage: UNK
  16. ATROPINE. [Concomitant]
     Active Substance: ATROPINE
     Dosage: UNK
     Dates: start: 20190123

REACTIONS (4)
  - Mesenteric vein thrombosis [Not Recovered/Not Resolved]
  - Splenic infarction [Not Recovered/Not Resolved]
  - Off label use [Unknown]
  - Embolism [Recovered/Resolved]

NARRATIVE: CASE EVENT DATE: 20190326
